FAERS Safety Report 9504124 (Version 1)
Quarter: 2013Q3

REPORT INFORMATION
  Report Type: Report from Study
  Country: DE (occurrence: DE)
  Receive Date: 20130906
  Receipt Date: 20130906
  Transmission Date: 20140515
  Serious: Yes (Death, Other)
  Sender: FDA-Public Use
  Company Number: DE-GENZYME-CAMP-1003136

PATIENT
  Age: 70 Year
  Sex: Male

DRUGS (11)
  1. CAMPATH [Suspect]
     Indication: PERIPHERAL T-CELL LYMPHOMA UNSPECIFIED
     Dosage: 3MG, ONCE, ON DAY 1(FIRST THREE DOSES); POST CHOP CHEMOTHERAPY
     Route: 042
  2. CAMPATH [Suspect]
     Dosage: 10 MG, ONCE, ON DAY 2(FIRST THREE DOSES); POST CHOP CHEMOTHERAPY
     Route: 042
  3. CAMPATH [Suspect]
     Dosage: 30 MG, ONCE, ON DAY 3 (FIRST THREE DOSES); POST CHOP CHEMOTHERAPY
     Route: 042
  4. CAMPATH [Suspect]
     Dosage: 30 MG, 1X/W (3 DOSES) ; POST CHOP CHEMOTHERAPY
     Route: 058
  5. CYCLOPHOSPHAMIDE [Suspect]
     Indication: PERIPHERAL T-CELL LYMPHOMA UNSPECIFIED
     Dosage: UNK; (CHOP CHEMOTHERAPY, 6 CYCLES)
     Route: 065
  6. DOXORUBICIN [Suspect]
     Indication: PERIPHERAL T-CELL LYMPHOMA UNSPECIFIED
     Dosage: UNK, (CHOP CHEMOTHERAPY, 6 CYCLES)
     Route: 065
  7. VINCRISTINE [Suspect]
     Indication: PERIPHERAL T-CELL LYMPHOMA UNSPECIFIED
     Dosage: UNK (PREPHASE TREATMENT)
     Route: 065
  8. VINCRISTINE [Suspect]
     Dosage: UNK, (CHOP CHEMOTHERAPY, 6 CYCLES)
     Route: 065
  9. PREDNISONE [Suspect]
     Indication: PERIPHERAL T-CELL LYMPHOMA UNSPECIFIED
     Dosage: UNK (PRETREATMENT)
     Route: 065
  10. PREDNISONE [Suspect]
     Dosage: UNK, (CHOP CHEMOTHERAPY, 6 CYCLES)
     Route: 065
  11. PEGFILGRASTIM [Concomitant]
     Indication: PRODUCT USED FOR UNKNOWN INDICATION
     Dosage: 6 MG, UNK
     Route: 065

REACTIONS (5)
  - Hepatic failure [Fatal]
  - Leukopenia [Unknown]
  - Cardiac failure [Fatal]
  - Cytomegalovirus infection [Fatal]
  - Pneumonia fungal [Fatal]
